FAERS Safety Report 8222178-4 (Version None)
Quarter: 2012Q1

REPORT INFORMATION
  Report Type: 
  Country: None (occurrence: None)
  Receive Date: 20120320
  Receipt Date: 20120316
  Transmission Date: 20120608
  Serious: Yes (Life-Threatening, Hospitalization, Other)
  Sender: FDA-Public Use
  Company Number: US-JNJFOC-20111208433

PATIENT
  Sex: Female
  Weight: 77.57 kg

DRUGS (5)
  1. ORTHO EVRA [Suspect]
     Indication: CONTRACEPTION
     Dosage: 150-20 MCG/ 24 HOUR
     Route: 062
     Dates: start: 20111215, end: 20111219
  2. ADVAIR DISKUS 100/50 [Concomitant]
     Indication: ASTHMA
     Dosage: 250-50 MCG/DOSE
     Route: 055
     Dates: start: 20110421, end: 20110801
  3. ALBUTEROL [Concomitant]
     Indication: ASTHMA
     Route: 065
     Dates: start: 20110421
  4. PROAIR HFA [Concomitant]
     Indication: ASTHMA
     Dosage: ACTIVATION
     Route: 055
     Dates: start: 20110401
  5. SINGULAIR [Concomitant]
     Indication: ASTHMA
     Dosage: UNIT DOSE
     Route: 065
     Dates: start: 20110421

REACTIONS (3)
  - DRY SKIN [None]
  - ANAPHYLACTIC REACTION [None]
  - APPLICATION SITE REACTION [None]
